FAERS Safety Report 6358292-8 (Version None)
Quarter: 2009Q3

REPORT INFORMATION
  Report Type: 
  Country: None (occurrence: None)
  Receive Date: 20090916
  Receipt Date: 20090909
  Transmission Date: 20100115
  Serious: Yes (Hospitalization)
  Sender: FDA-Public Use
  Company Number: PHHO2009KR11013

PATIENT
  Sex: Female
  Weight: 50 kg

DRUGS (14)
  1. ALISKIREN [Suspect]
     Indication: CARDIAC FAILURE
     Dosage: 150 MG/DAY
     Route: 048
     Dates: start: 20090905
  2. COMPARATOR ENALAPRIL [Suspect]
     Indication: CARDIAC FAILURE
     Dosage: 20 MG/DAY
     Route: 048
     Dates: start: 20090821
  3. COMPARATOR ENALAPRIL [Suspect]
     Dosage: 10 MG/DAY
     Route: 048
     Dates: start: 20090905
  4. BLINDED ALISKIREN ALI+CTAB [Suspect]
     Indication: CARDIAC FAILURE
     Dosage: NO TREATMENT
  5. BLINDED ENALAPRIL COMP-ENA+ [Suspect]
     Indication: CARDIAC FAILURE
     Dosage: NO TREATMENT
  6. BLINDED NO TREATMENT RECEIVED NOMED [Suspect]
     Indication: CARDIAC FAILURE
     Dosage: NO TREATMENT
  7. PERINDOPRIL [Concomitant]
     Indication: CARDIAC FAILURE CHRONIC
     Dosage: UNK
     Dates: start: 20090518, end: 20090814
  8. CARVEDILOL [Concomitant]
     Indication: CARDIAC FAILURE CHRONIC
     Dosage: UNK
  9. FUROSEMIDE [Concomitant]
     Indication: CARDIAC FAILURE CHRONIC
     Dosage: UNK
  10. DENOPAMINE [Concomitant]
     Indication: CARDIAC FAILURE CHRONIC
     Dosage: UNK
  11. WARFARIN [Concomitant]
     Indication: CARDIAC FAILURE CHRONIC
     Dosage: UNK
  12. ASPIRIN [Concomitant]
     Indication: CARDIAC FAILURE CHRONIC
     Dosage: UNK
  13. SIGMART [Concomitant]
     Indication: CARDIAC FAILURE CHRONIC
     Dosage: UNK
  14. OMACOR [Concomitant]
     Indication: CARDIAC FAILURE CHRONIC
     Dosage: UNK

REACTIONS (7)
  - BRAIN NATRIURETIC PEPTIDE INCREASED [None]
  - CARDIAC FAILURE [None]
  - CHEST PAIN [None]
  - COUGH [None]
  - DISEASE PROGRESSION [None]
  - MEAN CELL HAEMOGLOBIN CONCENTRATION DECREASED [None]
  - MEAN CELL VOLUME DECREASED [None]
